FAERS Safety Report 6376025-6 (Version None)
Quarter: 2009Q3

REPORT INFORMATION
  Report Type: 
  Country: None (occurrence: None)
  Receive Date: 20090924
  Receipt Date: 20090915
  Transmission Date: 20100115
  Serious: Yes (Other)
  Sender: FDA-Public Use
  Company Number: PHEH2009US11249

PATIENT
  Sex: Female

DRUGS (6)
  1. GLEEVEC [Suspect]
     Indication: CHRONIC MYELOID LEUKAEMIA
     Dosage: 400 MG, QD
     Route: 048
  2. GLEEVEC [Suspect]
     Dosage: UNK MG, QD
     Route: 048
     Dates: start: 20080306
  3. GLEEVEC [Suspect]
     Dosage: 300 MG, QD
     Route: 048
  4. TOPROL-XL [Concomitant]
  5. NAMENDA [Concomitant]
  6. TYLENOL (CAPLET) [Concomitant]

REACTIONS (9)
  - ANAEMIA [None]
  - ASTHENIA [None]
  - CONSTIPATION [None]
  - COUGH [None]
  - DECREASED APPETITE [None]
  - DYSARTHRIA [None]
  - FATIGUE [None]
  - ORBITAL OEDEMA [None]
  - PHOTOPHOBIA [None]
